FAERS Safety Report 8507507-6 (Version None)
Quarter: 2012Q3

REPORT INFORMATION
  Report Type: 
  Country: None (occurrence: None)
  Receive Date: 20120713
  Receipt Date: 20120706
  Transmission Date: 20120928
  Serious: Yes (Hospitalization, Other)
  Sender: FDA-Public Use
  Company Number: US-AMGEN-USASP2012033892

PATIENT
  Age: 59 Year
  Sex: Male
  Weight: 106 kg

DRUGS (4)
  1. ARANESP [Suspect]
     Indication: RENAL FAILURE CHRONIC
     Dosage: 200 MCG, QWK
     Route: 058
     Dates: start: 20111012, end: 20120130
  2. EPOGEN [Suspect]
     Dosage: 115000 UNITS, QWK
     Route: 042
     Dates: start: 20120215, end: 20120629
  3. EPOGEN [Suspect]
     Indication: RENAL FAILURE CHRONIC
     Dosage: UNK UNK, QWK
     Route: 042
     Dates: start: 20100315, end: 20110113
  4. EPOGEN [Suspect]
     Dosage: 20000 UNITS, QD
     Route: 058
     Dates: start: 20120130, end: 20120215

REACTIONS (7)
  - DYSPNOEA [None]
  - LEG AMPUTATION [None]
  - FATIGUE [None]
  - HAEMOGLOBIN DECREASED [None]
  - TRANSFERRIN SATURATION DECREASED [None]
  - DRUG INEFFECTIVE [None]
  - SERUM FERRITIN INCREASED [None]
